FAERS Safety Report 8257970-3 (Version None)
Quarter: 2012Q1

REPORT INFORMATION
  Report Type: 
  Country: None (occurrence: None)
  Receive Date: 20111211
  Receipt Date: 20110916
  Transmission Date: 20120608
  Serious: No
  Sender: FDA-Public Use
  Company Number: 201108078

PATIENT
  Age: 60 Year
  Sex: Male

DRUGS (5)
  1. XIAFLEX(CLOSTRIDIAL COLLAGENASE) [Suspect]
     Indication: DUPUYTREN'S CONTRACTURE
     Dosage: 1 IN 1 D, INTRALESIONAL; 1 IN 1 D, INTRALESIONAL; 1 IN 1 D, INTRALESIONAL
     Route: 026
     Dates: start: 20110620, end: 20110620
  2. XIAFLEX(CLOSTRIDIAL COLLAGENASE) [Suspect]
     Indication: DUPUYTREN'S CONTRACTURE
     Dosage: 1 IN 1 D, INTRALESIONAL; 1 IN 1 D, INTRALESIONAL; 1 IN 1 D, INTRALESIONAL
     Route: 026
     Dates: start: 20110330, end: 20110330
  3. XIAFLEX(CLOSTRIDIAL COLLAGENASE) [Suspect]
     Indication: DUPUYTREN'S CONTRACTURE
     Dosage: 1 IN 1 D, INTRALESIONAL; 1 IN 1 D, INTRALESIONAL; 1 IN 1 D, INTRALESIONAL
     Route: 026
     Dates: start: 20110823, end: 20110823
  4. PANTOPRAZOLE [Concomitant]
  5. ATENOLOL CHLOTHALIDONE(CHLORTALIDONE) [Concomitant]

REACTIONS (1)
  - DRUG INEFFECTIVE [None]
